FAERS Safety Report 21677926 (Version 2)
Quarter: 2022Q4

REPORT INFORMATION
  Report Type: Report from Study
  Country: AU (occurrence: AU)
  Receive Date: 20221203
  Receipt Date: 20221207
  Transmission Date: 20230113
  Serious: Yes (Hospitalization, Other)
  Sender: FDA-Public Use
  Company Number: AU-ABBVIE-4210722

PATIENT
  Age: 74 Year
  Sex: Male

DRUGS (2)
  1. CARBIDOPA\LEVODOPA [Suspect]
     Active Substance: CARBIDOPA\LEVODOPA
     Indication: Parkinson^s disease
     Dosage: DURATION: 24 HOURS
     Route: 050
     Dates: start: 20160527
  2. CARBIDOPA\LEVODOPA [Suspect]
     Active Substance: CARBIDOPA\LEVODOPA

REACTIONS (4)
  - Hospitalisation [Unknown]
  - Device occlusion [Recovered/Resolved]
  - Intestinal adenocarcinoma [Unknown]
  - Embedded device [Recovered/Resolved]

NARRATIVE: CASE EVENT DATE: 20221101
